FAERS Safety Report 19628208 (Version 2)
Quarter: 2021Q3

REPORT INFORMATION
  Report Type: Report from Study
  Country: GB (occurrence: GB)
  Receive Date: 20210729
  Receipt Date: 20210909
  Transmission Date: 20211014
  Serious: Yes (Life-Threatening, Hospitalization, Other)
  Sender: FDA-Public Use
  Company Number: GB-MYLANLABS-2021M1045545

PATIENT

DRUGS (70)
  1. TRASTUZUMAB. [Suspect]
     Active Substance: TRASTUZUMAB
     Dosage: 450 MILLIGRAM, TOTAL (450 MG 1 TOTAL (LOADING DOSE))
     Route: 041
     Dates: start: 20151105, end: 20151105
  2. TRASTUZUMAB. [Suspect]
     Active Substance: TRASTUZUMAB
     Dosage: 350 MILLIGRAM, Q3W (350 MG, EVERY 3 WEEK (MAINTENANCE DOS
     Route: 042
     Dates: start: 20151203, end: 20180427
  3. CHLORHEXIDINE GLUCONATE. [Concomitant]
     Active Substance: CHLORHEXIDINE GLUCONATE
     Dosage: 4 EVERY 1 DAY (MOUTHWASH)
     Route: 048
     Dates: start: 20151105
  4. CLOPIDOGREL [Concomitant]
     Active Substance: CLOPIDOGREL BISULFATE
     Dosage: UNK (DOSE FORM: 245)
     Route: 048
     Dates: start: 20170701
  5. EZETIMIBE. [Concomitant]
     Active Substance: EZETIMIBE
     Dosage: UNK
     Route: 048
     Dates: start: 2019
  6. ROSUVASTATIN CALCIUM. [Concomitant]
     Active Substance: ROSUVASTATIN CALCIUM
     Dosage: 5 MILLIGRAM
     Route: 048
     Dates: start: 201806, end: 201911
  7. TRAMADOL. [Concomitant]
     Active Substance: TRAMADOL
     Indication: PROPHYLAXIS
     Dosage: 50 MILLIGRAM (50 MG (DOSE FORM: 5))
     Route: 048
     Dates: start: 20151105
  8. PACLITAXEL. [Suspect]
     Active Substance: PACLITAXEL
     Dosage: 139 MILLIGRAM, Q28D (139 MG, EVERY 4 WEEKS (CUMULATIVE DOSE: 229.5 MG))
     Route: 042
     Dates: start: 20151210
  9. PACLITAXEL. [Suspect]
     Active Substance: PACLITAXEL
     Dosage: 102 MILLIGRAM, Q28D (102 MG, EVERY 4 WEEKS)
     Route: 042
     Dates: start: 20160204, end: 20160218
  10. PACLITAXEL LIPOSOME [Suspect]
     Active Substance: PACLITAXEL
     Dosage: 134 MILLIGRAM, Q28D (134 MG, EVERY 4 WEEKS (CUMULATIVE DOSE: 229.5 MG
     Route: 042
     Dates: start: 20151210
  11. PACLITAXEL LIPOSOME [Suspect]
     Active Substance: PACLITAXEL
     Dosage: 120 MILLIGRAM, Q28D (120 MG, EVERY 4 WEEKS)
     Route: 042
     Dates: start: 20160204
  12. PERTUZUMAB. [Suspect]
     Active Substance: PERTUZUMAB
     Indication: BREAST CANCER METASTATIC
     Dosage: 420 MILLIGRAM, Q3W (420 MG, EVERY 3 WEEKS (MAIN
     Route: 042
     Dates: start: 20151203
  13. PERTUZUMAB. [Suspect]
     Active Substance: PERTUZUMAB
     Dosage: 420 MILLIGRAM, Q3W (420 MG, EVERY 3 WEEKS
     Route: 042
     Dates: start: 20151203
  14. TRASTUZUMAB. [Suspect]
     Active Substance: TRASTUZUMAB
     Dosage: 450 MILLIGRAM, TOTAL (450 MG 1 TOTAL (LOADING DOSE))
     Route: 041
     Dates: start: 20151105, end: 20151105
  15. TRASTUZUMAB. [Suspect]
     Active Substance: TRASTUZUMAB
     Dosage: 336 MILLIGRAM, Q3W (336 MG, EVERY 3 WEEK (INFUSION, SOLUTION
     Route: 042
     Dates: start: 20180518, end: 20190427
  16. ROSUVASTATIN. [Concomitant]
     Active Substance: ROSUVASTATIN
     Dosage: 5 MILLIGRAM
     Route: 048
     Dates: start: 201806, end: 201911
  17. PACLITAXEL. [Suspect]
     Active Substance: PACLITAXEL
     Dosage: 68 MILLIGRAM, QW (68 MG, EVERY 1 WEEKS (DATE OF LAST ADMINISTERED DOS
     Route: 042
     Dates: start: 20160303, end: 20160310
  18. PACLITAXEL. [Suspect]
     Active Substance: PACLITAXEL
     Dosage: 102 MILLIGRAM, QW (102 MG, EVERY 4 WEEKS (CUMULATIVE DOSE: 229.5 MG))
     Route: 042
     Dates: start: 20160204, end: 20160218
  19. PACLITAXEL. [Suspect]
     Active Substance: PACLITAXEL
     Dosage: 68 MILLIGRAM, QW (68 MG, EVERY 1 WEEKS (DATE OF LAST ADMINISTERED DOSE: )
     Route: 042
     Dates: start: 20160303, end: 20160310
  20. HERCEPTIN [Suspect]
     Active Substance: TRASTUZUMAB
     Dosage: 350 MILLIGRAM, Q3W (350 MG, EVERY 3 WEEKS (MAIN
     Route: 042
     Dates: start: 20151203
  21. TRASTUZUMAB. [Suspect]
     Active Substance: TRASTUZUMAB
     Dosage: 336 MILLIGRAM, Q3W (336 MG, EVERY 3 WEEK (INFUSION, SOLUTION,)
     Route: 042
     Dates: start: 20180518, end: 20190427
  22. ACETYLSALICYLIC ACID [Concomitant]
     Active Substance: ASPIRIN
     Dosage: UNK
  23. ATORVASTATIN [Concomitant]
     Active Substance: ATORVASTATIN
     Dosage: 40 MILLIGRAM, QD (40 MG, EVERY 1 DAY (DOSE FORM: 245) )
     Route: 048
     Dates: start: 20170701
  24. METOCLOPRAMIDE. [Concomitant]
     Active Substance: METOCLOPRAMIDE
     Indication: PROPHYLAXIS
     Dosage: 10 MILLIGRAM (10 MG (DOSE FORM: 245))
     Route: 048
     Dates: start: 20151203
  25. PACLITAXEL. [Suspect]
     Active Substance: PACLITAXEL
     Dosage: 139 MILLIGRAM, Q28D (139 MG, EVERY 4 WEEKS)
     Route: 042
     Dates: start: 20151210
  26. TRASTUZUMAB. [Suspect]
     Active Substance: TRASTUZUMAB
     Dosage: 350 MILLIGRAM, Q3W (350 MG, EVERY 3 WEEK (MAINTENANCE DOSE; DOSE)
     Route: 042
     Dates: start: 20151203, end: 20180427
  27. TRASTUZUMAB. [Suspect]
     Active Substance: TRASTUZUMAB
     Dosage: 450 MILLIGRAM ()450 MG 1 TOTAL (LOADING DOSE
     Route: 041
     Dates: start: 20151105, end: 20151105
  28. CETIRIZINE [Concomitant]
     Active Substance: CETIRIZINE HYDROCHLORIDE
     Indication: PROPHYLAXIS
     Dosage: 10 MILLIGRAM(10 MG (1 TABLET AT NIGHT FOR 3 DAYS; DOSE FORM: 245)   )
     Route: 048
     Dates: start: 20151203
  29. DEXAMETHASONE. [Concomitant]
     Active Substance: DEXAMETHASONE
     Indication: PROPHYLAXIS
     Dosage: 8 MILLIGRAM (8 MG (DOSE FORM: 245))
     Route: 048
     Dates: start: 20151105
  30. RAMIPRIL. [Concomitant]
     Active Substance: RAMIPRIL
     Dosage: 1.25 MILLIGRAM, QD (1.25 MG, EVERY 1 DAY (DOSE FORM: 245))
     Route: 048
     Dates: start: 20170523
  31. PACLITAXEL. [Suspect]
     Active Substance: PACLITAXEL
     Dosage: 138 MILLIGRAM, Q28D (138 MG, EVERY 4 WEEKS (CUMULATIVE DOSE:
     Route: 042
     Dates: start: 20151203, end: 20160203
  32. PACLITAXEL. [Suspect]
     Active Substance: PACLITAXEL
     Dosage: 102 MILLIGRAM, Q28D (102 MG, EVERY 4 WEEKS (CUMULATIVE DOSE: 229.5 M
     Route: 042
     Dates: start: 20160204, end: 20160218
  33. PACLITAXEL. [Suspect]
     Active Substance: PACLITAXEL
     Dosage: 139 MILLIGRAM, Q28D (139 MG, EVERY 4 WEEKS (CUMULATIVE DOSE: 229.5 MG
     Route: 042
     Dates: start: 20151210
  34. PACLITAXEL. [Suspect]
     Active Substance: PACLITAXEL
     Dosage: 138 MILLIGRAM, Q28D (138 MG, EVERY 4 WEEKS (CUMULATIVE DOSE: 229.5 MG))
     Route: 042
     Dates: start: 20151203, end: 20160203
  35. PACLITAXEL. [Suspect]
     Active Substance: PACLITAXEL
     Dosage: 68 MILLIGRAM, QW (68 MG, EVERY 1 WEEKS (DATE OF LAST ADMINISTERED DOSE: 10?MAR?2016;)
     Route: 042
     Dates: start: 20160303, end: 20160310
  36. PACLITAXEL. [Suspect]
     Active Substance: PACLITAXEL
     Indication: BREAST CANCER METASTATIC
     Dosage: 68 MILLIGRAM, QW (68 MG, WEEKLY)
     Route: 042
     Dates: start: 20160303, end: 20160310
  37. PACLITAXEL LIPOSOME [Suspect]
     Active Substance: PACLITAXEL
     Dosage: 68 MILLIGRAM, QW (68 MG, EVERY 1 WEEK (DATE OF LAST ADMINISTE
     Route: 042
     Dates: start: 20160303
  38. RANITIDINE. [Concomitant]
     Active Substance: RANITIDINE
     Indication: PROPHYLAXIS
     Dosage: 150 MILLIGRAM (150 MG (1 TABLET TWICE A DAY FOR 3 DAYS; DOSE FORM: 245))
     Route: 048
     Dates: start: 20151203
  39. ROSUVASTATIN CALCIUM. [Concomitant]
     Active Substance: ROSUVASTATIN CALCIUM
     Dosage: UNK
  40. TRAMADOL HYDROCHLORIDE. [Concomitant]
     Active Substance: TRAMADOL HYDROCHLORIDE
     Indication: PROPHYLAXIS
     Dosage: 50 MILLIGRAM (50 MG (DOSE FORM: 5))
     Route: 048
     Dates: start: 20151105
  41. PACLITAXEL. [Suspect]
     Active Substance: PACLITAXEL
     Indication: PRODUCT USED FOR UNKNOWN INDICATION
     Dosage: 120 MILLIGRAM, Q28D (120 MG, EVERY 4 WEEKS (3
     Route: 042
     Dates: start: 20160204
  42. PACLITAXEL. [Suspect]
     Active Substance: PACLITAXEL
     Dosage: 102 MILLIGRAM, Q28D (102 MG, EVERY 4 WEEKS (CUMULATIVE DOSE: 229.5 MG))
     Route: 042
     Dates: start: 20160204, end: 20160218
  43. DOCETAXEL. [Suspect]
     Active Substance: DOCETAXEL
     Indication: BREAST CANCER METASTATIC
     Dosage: 124 MILLIGRAM, Q3W (124 MG, EVERY 3 W
     Route: 042
     Dates: start: 20151106, end: 20151106
  44. HERCEPTIN [Suspect]
     Active Substance: TRASTUZUMAB
     Indication: BREAST CANCER METASTATIC
     Dosage: 450 MILLIGRAM (450 MG, TOTAL (LOADING D
     Route: 041
     Dates: start: 20151105, end: 20151105
  45. PACLITAXEL. [Suspect]
     Active Substance: PACLITAXEL
     Dosage: 138 MILLIGRAM, Q28D (138 MG, EVERY 4 WEEKS)
     Route: 042
     Dates: start: 20151203, end: 20160203
  46. PERTUZUMAB. [Suspect]
     Active Substance: PERTUZUMAB
     Dosage: 840 MILLIGRAM (840 MG, TOTAL
     Route: 042
     Dates: start: 20151105, end: 20151105
  47. TRASTUZUMAB. [Suspect]
     Active Substance: TRASTUZUMAB
     Indication: BREAST CANCER METASTATIC
     Dosage: 336 MILLIGRAM, Q3W (336 MG, EVERY 3 WEEK (INFUSION, SOL
     Route: 042
     Dates: start: 20180518, end: 20190427
  48. ASPIRIN                            /00002701/ [Concomitant]
     Active Substance: ASPIRIN
     Dosage: 75 MILLIGRAM, QD (75 MG EVERY 1 DAY (CUMULATIVE DOSE
     Route: 048
     Dates: start: 20170523, end: 20170701
  49. PACLITAXEL. [Suspect]
     Active Substance: PACLITAXEL
     Dosage: 138 MILLIGRAM, Q28D (138 MG, EVERY 4 WEEKS (CUMULATIVE DOSE: 229.5 MG)  )
     Route: 042
     Dates: start: 20151203, end: 20160203
  50. PACLITAXEL. [Suspect]
     Active Substance: PACLITAXEL
     Dosage: 139 MILLIGRAM, Q28D (139 MG, EVERY 4 WEEKS (CUMULATIVE DOSE: 229.5 MG))
     Route: 042
     Dates: start: 20151210
  51. PACLITAXEL. [Suspect]
     Active Substance: PACLITAXEL
     Dosage: 102 MILLIGRAM, QW  (102 MG, EVERY 4 WEEKS (CUMULATIVE DOSE: 229.5 MG
     Route: 042
     Dates: start: 20160204, end: 20160218
  52. PACLITAXEL. [Suspect]
     Active Substance: PACLITAXEL
     Dosage: 138 MILLIGRAM, Q28D (138 MG, EVERY 4 WEEKS (CUMULATIVE DOSE: 229.5 MG))
     Route: 042
     Dates: start: 20151203, end: 20160203
  53. PACLITAXEL LIPOSOME [Suspect]
     Active Substance: PACLITAXEL
     Indication: BREAST CANCER METASTATIC
     Dosage: 102 MILLIGRAM, Q28D (102 MG, EVERY 4 WEEKS (CUMULATIVED DOSE: 229.5 MG))
     Route: 042
     Dates: start: 20160204, end: 20160218
  54. PERTUZUMAB. [Suspect]
     Active Substance: PERTUZUMAB
     Dosage: 420 MILLIGRAM, Q3W
     Route: 042
     Dates: start: 20151203
  55. TRASTUZUMAB. [Suspect]
     Active Substance: TRASTUZUMAB
     Dosage: 350 MILLIGRAM, Q3W (350 MG, EVERY 3 WEEK (MAINTENANCE DOSE; DOS
     Route: 042
     Dates: start: 20151203, end: 20180427
  56. CHLORHEXIDINE GLUCONATE. [Concomitant]
     Active Substance: CHLORHEXIDINE GLUCONATE
     Indication: PROPHYLAXIS
     Dosage: EVERY 0.25 DAY (MOUTHWASH)
     Route: 048
     Dates: start: 20151105
  57. LANSOPRAZOLE. [Concomitant]
     Active Substance: LANSOPRAZOLE
     Dosage: 30 MILLIGRAM, QD (30 MG, EVERY 1 DAY (DOSE FORM: 5))
     Route: 048
     Dates: start: 20170312
  58. LOPERAMIDE [Concomitant]
     Active Substance: LOPERAMIDE
     Indication: PROPHYLAXIS
     Dosage: 2 MILLIGRAM (2 MG (4 TABLET TWICE A DAY FOR 3 DAYS; )
     Route: 048
     Dates: start: 20151203
  59. PACLITAXEL. [Suspect]
     Active Substance: PACLITAXEL
     Dosage: 68 MILLIGRAM, QW (68 MG, EVERY 1 WEEKS (DATE OF LAS
     Route: 042
     Dates: start: 20160303, end: 20160310
  60. PACLITAXEL. [Suspect]
     Active Substance: PACLITAXEL
     Dosage: 139 MILLIGRAM, Q28D (139 MG, EVERY 4 WEEKS)
     Route: 042
     Dates: start: 20151210
  61. PACLITAXEL. [Suspect]
     Active Substance: PACLITAXEL
     Dosage: 120 MILLIGRAM, MONTHLY (34.75 MG CD, 884 MG, 4.92857142 MG; CUMULATIVE DOSE: 229.5 MG)
     Route: 042
     Dates: start: 20160204
  62. PACLITAXEL LIPOSOME [Suspect]
     Active Substance: PACLITAXEL
     Dosage: 138 MILLIGRAM, Q28D (138 MG EVERY 4 WEEKS (CUMULATIVE DOSE: 229.5 MG) )
     Route: 042
     Dates: start: 20151203, end: 20160203
  63. PERTUZUMAB. [Suspect]
     Active Substance: PERTUZUMAB
     Dosage: 840 MILLIGRAM (840 MG, TOTAL (LOADING
     Route: 042
     Dates: start: 20151105, end: 20151105
  64. TRASTUZUMAB. [Suspect]
     Active Substance: TRASTUZUMAB
     Dosage: 450 MILLIGRAM, Q3W (450 MG, EVERY 3 WEEK (LOADING DOS
     Route: 042
     Dates: start: 20151105, end: 20151105
  65. ACETYLSALICYLIC ACID [Concomitant]
     Active Substance: ASPIRIN
     Dosage: 75 MILLIGRAM, QD (75 MG, EVERY 1 DAY (DOSE FORM: 245))
     Route: 048
     Dates: start: 20170523, end: 20170701
  66. CHLORHEXIDINE [Concomitant]
     Active Substance: CHLORHEXIDINE
     Indication: PROPHYLAXIS
     Dosage: UNK UNK, QD (EVERY 1 DAY (MOUTHWASH))
     Route: 048
     Dates: start: 20151105
  67. LORATADINE. [Concomitant]
     Active Substance: LORATADINE
     Dosage: DOSE FORM: 245
     Route: 048
     Dates: start: 20151119, end: 20151217
  68. RAMIPRIL. [Concomitant]
     Active Substance: RAMIPRIL
     Dosage: 2.5 MILLIGRAM, QD (2.5 MG, EVERY 1 DAY (DOSE FORM: 245)   )
     Route: 048
     Dates: start: 20170523
  69. TRIMETHOPRIM. [Concomitant]
     Active Substance: TRIMETHOPRIM
     Indication: URINARY TRACT INFECTION
     Dosage: 200 MILLIGRAM, QD (200 MG, EVERY 1 DAY (DOSE FORM: 245)  )
     Route: 048
     Dates: start: 20151210
  70. TRIMETHOPRIM. [Concomitant]
     Active Substance: TRIMETHOPRIM
     Dosage: 400 MILLIGRAM, QD (400 MG EVERY 1 DAY (CUMULATIVE DOSE TO FIRST )
     Route: 048
     Dates: start: 20151210

REACTIONS (22)
  - Anaphylactic reaction [Recovered/Resolved]
  - Chest discomfort [Recovered/Resolved]
  - Escherichia test positive [Not Recovered/Not Resolved]
  - Dyspnoea [Recovered/Resolved]
  - Neuropathy peripheral [Recovered/Resolved]
  - Rash [Recovered/Resolved]
  - Tremor [Recovered/Resolved]
  - Hypertension [Recovered/Resolved]
  - Malaise [Recovered/Resolved]
  - Erythema [Recovered/Resolved]
  - Tendonitis [Not Recovered/Not Resolved]
  - Urosepsis [Recovered/Resolved]
  - Mucosal inflammation [Recovered/Resolved]
  - Dysuria [Recovered/Resolved]
  - Bacterial test positive [Recovered/Resolved]
  - Fatigue [Recovered/Resolved]
  - Palmar erythema [Recovered/Resolved]
  - Defaecation urgency [Recovered/Resolved]
  - Hypersensitivity [Recovered/Resolved]
  - Diarrhoea [Recovered/Resolved]
  - Urinary tract infection [Recovered/Resolved]
  - Cystitis noninfective [Recovered/Resolved]

NARRATIVE: CASE EVENT DATE: 201512
